FAERS Safety Report 14363635 (Version 1)
Quarter: 2018Q1

REPORT INFORMATION
  Report Type: Spontaneous
  Country: US (occurrence: US)
  Receive Date: 20180105
  Receipt Date: 20180105
  Transmission Date: 20180509
  Serious: Yes (Other)
  Sender: FDA-Public Use
  Company Number: None

PATIENT
  Age: 33 Year
  Sex: Female
  Weight: 65.3 kg

DRUGS (1)
  1. LEXAPRO [Suspect]
     Active Substance: ESCITALOPRAM OXALATE
     Dosage: 20MG ONE PO QAM ORAL
     Route: 048
     Dates: start: 20151008, end: 20151124

REACTIONS (4)
  - Maternal drugs affecting foetus [None]
  - Maternal exposure during pregnancy [None]
  - Sickle cell trait [None]
  - Syndactyly [None]

NARRATIVE: CASE EVENT DATE: 20151130
